FAERS Safety Report 9247498 (Version 1)
Quarter: 2013Q2

REPORT INFORMATION
  Report Type: Spontaneous
  Country: US (occurrence: US)
  Receive Date: 20130423
  Receipt Date: 20130423
  Transmission Date: 20140414
  Serious: Yes (Other)
  Sender: FDA-Public Use
  Company Number: US-ASTELLAS-2013US004156

PATIENT
  Sex: Female
  Weight: 65 kg

DRUGS (4)
  1. VESICARE [Suspect]
     Indication: HYPERTONIC BLADDER
     Dosage: 10 MG, UID/QD
     Route: 048
     Dates: start: 201111
  2. UNSPECIFIED MEDICATION [Suspect]
     Indication: PRODUCT USED FOR UNKNOWN INDICATION
     Dosage: UNK
     Route: 065
  3. DIOVAN [Concomitant]
     Indication: BLOOD PRESSURE
     Dosage: 160 MG, BID
     Route: 048
  4. BISOPROLOL [Concomitant]
     Indication: BLOOD PRESSURE
     Dosage: 5 MG, BID
     Route: 048

REACTIONS (1)
  - Fungal infection [Unknown]
